FAERS Safety Report 4496631-3 (Version None)
Quarter: 2004Q4

REPORT INFORMATION
  Report Type: 
  Country: None (occurrence: None)
  Receive Date: 20041108
  Receipt Date: 20041028
  Transmission Date: 20050328
  Serious: No
  Sender: FDA-Public Use
  Company Number: 2004CG02193

PATIENT
  Age: 51 Year
  Sex: Male

DRUGS (1)
  1. CRESTOR [Suspect]
     Dates: start: 20040101, end: 20040101

REACTIONS (1)
  - DERMATITIS EXFOLIATIVE [None]
